FAERS Safety Report 18523700 (Version 1)
Quarter: 2020Q4

REPORT INFORMATION
  Report Type: Spontaneous
  Country: AU (occurrence: AU)
  Receive Date: 20201119
  Receipt Date: 20201119
  Transmission Date: 20210114
  Serious: Yes (Other)
  Sender: FDA-Public Use
  Company Number: AU-ASTRAZENECA-2020SF47319

PATIENT
  Age: 22016 Day
  Sex: Female

DRUGS (4)
  1. AUSFAM 40 FAMOTIDINE 40MG TABLET [Suspect]
     Active Substance: FAMOTIDINE
     Dosage: 40 MG HALF A TABLET IN THE AFTERNOON
     Route: 065
     Dates: start: 20201103
  2. NEXIUM [Suspect]
     Active Substance: ESOMEPRAZOLE MAGNESIUM
     Indication: GASTROOESOPHAGEAL REFLUX DISEASE
     Route: 048
     Dates: start: 2010, end: 20201105
  3. LIFESTREAM FIBRE [Suspect]
     Active Substance: PSYLLIUM HUSK
     Route: 065
  4. ENZYMES WITH PRE AND PRO BIOTICS POWDER (LACTOBACILLUS REUTERI) [Suspect]
     Active Substance: LACTOBACILLUS REUTERI
     Route: 065

REACTIONS (5)
  - Haematochezia [Recovered/Resolved]
  - Intentional product misuse [Unknown]
  - Diverticulitis [Unknown]
  - Dry mouth [Not Recovered/Not Resolved]
  - Kidney enlargement [Unknown]

NARRATIVE: CASE EVENT DATE: 20201103
